FAERS Safety Report 9208746 (Version 2)
Quarter: 2013Q2

REPORT INFORMATION
  Report Type: Spontaneous
  Country: US (occurrence: US)
  Receive Date: 20130404
  Receipt Date: 20130516
  Transmission Date: 20140414
  Serious: No
  Sender: FDA-Public Use
  Company Number: US-PFIZER INC-2013103193

PATIENT
  Age: 19 Year
  Sex: Female
  Weight: 77.1 kg

DRUGS (2)
  1. ADVIL [Suspect]
     Indication: HEADACHE
     Dosage: 400MG (2 CAPSULES OF 200MG EACH), 2X/DAY
     Route: 048
     Dates: start: 201303, end: 20130326
  2. ADVIL [Suspect]
     Indication: PAIN

REACTIONS (1)
  - Drug ineffective [Unknown]
